FAERS Safety Report 6424743-3 (Version None)
Quarter: 2009Q4

REPORT INFORMATION
  Report Type: 
  Country: None (occurrence: None)
  Receive Date: 20091030
  Receipt Date: 20091030
  Transmission Date: 20100525
  Serious: No
  Sender: FDA-Public Use
  Company Number: None

PATIENT
  Age: 79 Year
  Sex: Male

DRUGS (1)
  1. HEPARIN [Suspect]
     Dosage: 2 UNITS IV
     Route: 042
     Dates: start: 20090717, end: 20090717

REACTIONS (3)
  - ANXIETY [None]
  - DRUG HYPERSENSITIVITY [None]
  - URINARY INCONTINENCE [None]
